FAERS Safety Report 5024213-3 (Version None)
Quarter: 2006Q2

REPORT INFORMATION
  Report Type: 
  Country: None (occurrence: None)
  Receive Date: 20060426
  Receipt Date: 20060328
  Transmission Date: 20061013
  Serious: Yes (Other)
  Sender: FDA-Public Use
  Company Number: 2006044166

PATIENT
  Age: 44 Year
  Sex: Male
  Weight: 104.3273 kg

DRUGS (7)
  1. LYRICA [Suspect]
     Indication: ILL-DEFINED DISORDER
     Dosage: 100 MG (50 MG, 2 IN 1 D)
     Dates: start: 20060101
  2. XANAX [Concomitant]
  3. PERCOCET [Concomitant]
  4. FLEXERIL [Concomitant]
  5. BENADRYL [Concomitant]
  6. FLONASE [Concomitant]
  7. PROMETHAZINE [Concomitant]

REACTIONS (2)
  - FAECAL INCONTINENCE [None]
  - URINARY INCONTINENCE [None]
